FAERS Safety Report 6911920-8 (Version None)
Quarter: 2010Q3

REPORT INFORMATION
  Report Type: 
  Country: None (occurrence: None)
  Receive Date: 20100806
  Receipt Date: 20071010
  Transmission Date: 20110219
  Serious: No
  Sender: FDA-Public Use
  Company Number: US-PFIZER INC-2007085175

PATIENT
  Sex: Male
  Weight: 81.19 kg

DRUGS (6)
  1. TOLTERODINE ER [Suspect]
     Indication: MICTURITION URGENCY
     Dates: start: 20070101
  2. TOLTERODINE ER [Suspect]
     Indication: URINARY RETENTION
  3. DETROL LA [Suspect]
     Indication: MICTURITION URGENCY
     Dates: start: 20070901
  4. DETROL LA [Suspect]
     Indication: URINARY RETENTION
  5. CLARITIN [Concomitant]
     Indication: MUSCULAR WEAKNESS
  6. ALL OTHER THERAPEUTIC PRODUCTS [Concomitant]
     Indication: MUSCULAR WEAKNESS

REACTIONS (1)
  - PENILE PAIN [None]
